FAERS Safety Report 5856144-0 (Version None)
Quarter: 2008Q3

REPORT INFORMATION
  Report Type: 
  Country: None (occurrence: None)
  Receive Date: 20080825
  Receipt Date: 20080812
  Transmission Date: 20090109
  Serious: Yes (Death, Hospitalization)
  Sender: FDA-Public Use
  Company Number: PE-ROCHE-580162

PATIENT
  Sex: Male
  Weight: 60.5 kg

DRUGS (3)
  1. CAPECITABINE [Suspect]
     Indication: GASTRIC CANCER
     Dosage: FREQUENCY REPORTED AS: BID D1-14 Q3W. PROTOCOL FREQUENCY: TWICE DAILY FOR 14 DAYS EVERY 3 WEEKS .
     Route: 048
     Dates: start: 20080624
  2. BLINDED BEVACIZUMAB [Suspect]
     Indication: GASTRIC CANCER
     Dosage: FREQUENCY REPORTED AS: ^D1Q3W^. DOSAGE FORM REPORTED AS ^INFUSION^.
     Route: 042
     Dates: start: 20080624
  3. CISPLATIN [Suspect]
     Indication: GASTRIC CANCER
     Dosage: FREQUENCY REPORTED AS ^DIQ3W^. DOSAGE FORM REPORTED AS ^INFUSION^.
     Route: 042
     Dates: start: 20080624

REACTIONS (2)
  - DEHYDRATION [None]
  - SEPSIS [None]
